FAERS Safety Report 9727477 (Version 1)
Quarter: 2013Q4

REPORT INFORMATION
  Report Type: Spontaneous
  Country: US (occurrence: US)
  Receive Date: 20131203
  Receipt Date: 20131203
  Transmission Date: 20140711
  Serious: Yes (Other)
  Sender: FDA-Public Use
  Company Number: ALCN2013US005944

PATIENT
  Age: 80 Year
  Sex: Female

DRUGS (1)
  1. ATROPINE SULFATE [Suspect]
     Dosage: UNK
     Route: 047

REACTIONS (3)
  - Visual impairment [Unknown]
  - Chest pain [Unknown]
  - Abdominal discomfort [Unknown]
